FAERS Safety Report 6228736-0 (Version None)
Quarter: 2009Q2

REPORT INFORMATION
  Report Type: 
  Country: None (occurrence: None)
  Receive Date: 20090615
  Receipt Date: 20090611
  Transmission Date: 20091009
  Serious: Yes (Other)
  Sender: FDA-Public Use
  Company Number: US-JNJFOC-20090300109

PATIENT
  Sex: Male
  Weight: 89.36 kg

DRUGS (2)
  1. LEVAQUIN [Suspect]
     Indication: CELLULITIS
     Route: 048
  2. COUMADIN [Concomitant]
     Route: 048

REACTIONS (4)
  - ANGINA UNSTABLE [None]
  - CHRONIC OBSTRUCTIVE PULMONARY DISEASE [None]
  - FLUID RETENTION [None]
  - TENDON RUPTURE [None]
